FAERS Safety Report 6093353-2 (Version None)
Quarter: 2009Q1

REPORT INFORMATION
  Report Type: 
  Country: None (occurrence: None)
  Receive Date: 20090220
  Receipt Date: 20090209
  Transmission Date: 20090719
  Serious: Yes (Hospitalization, Other)
  Sender: FDA-Public Use
  Company Number: GXKR2007GB08310

PATIENT
  Age: 58 Year
  Sex: Male
  Weight: 127 kg

DRUGS (10)
  1. WARFARIN SODIUM [Suspect]
     Indication: ATRIAL FIBRILLATION
     Dates: start: 20060104, end: 20070904
  2. VARENICLINE TARTRATE (VARENICLINE TARTRATE) [Suspect]
     Indication: SMOKING CESSATION THERAPY
     Dosage: 1 MG, BID, ORAL
     Route: 048
     Dates: start: 20070802, end: 20070814
  3. AMIODARONE (AMIODARONE) [Concomitant]
  4. AMITRIPTYLINE HYDROCHLORIDE [Concomitant]
  5. BISOPROLOL (BISOPROLOL) [Concomitant]
  6. CANDESARTAN CILEXETIL [Concomitant]
  7. DIGOXIN [Concomitant]
  8. LANSOPRAZOLE [Concomitant]
  9. SIMVASTATIN [Concomitant]
  10. SPIRONOLACTONE [Concomitant]

REACTIONS (8)
  - ABDOMINAL PAIN [None]
  - DRUG INTERACTION [None]
  - GROIN PAIN [None]
  - HAEMATOMA INFECTION [None]
  - HAEMOGLOBIN DECREASED [None]
  - HAEMORRHAGE [None]
  - INTERNATIONAL NORMALISED RATIO FLUCTUATION [None]
  - INTRA-ABDOMINAL HAEMATOMA [None]
